FAERS Safety Report 10432142 (Version 2)
Quarter: 2014Q4

REPORT INFORMATION
  Report Type: Report from Study
  Country: GB (occurrence: GB)
  Receive Date: 20140905
  Receipt Date: 20141013
  Transmission Date: 20150528
  Serious: Yes (Hospitalization)
  Sender: FDA-Public Use
  Company Number: GB-ROCHE-1458190

PATIENT
  Age: 55 Year
  Sex: Female

DRUGS (17)
  1. METHOTREXATE [Concomitant]
     Active Substance: METHOTREXATE
     Route: 065
     Dates: start: 20120216
  2. PARACETAMOL [Concomitant]
     Active Substance: ACETAMINOPHEN
     Route: 048
     Dates: start: 20110101
  3. AMOXICILLIN. [Concomitant]
     Active Substance: AMOXICILLIN
     Indication: LOWER RESPIRATORY TRACT INFECTION
     Route: 048
     Dates: start: 20140704, end: 20140710
  4. BECLOMETHASONE [Concomitant]
     Active Substance: BECLOMETHASONE
     Indication: DYSPNOEA
     Dosage: 2 APPLICATION
     Route: 065
     Dates: start: 20140625
  5. SIMVASTATIN. [Concomitant]
     Active Substance: SIMVASTATIN
     Route: 065
     Dates: start: 20140901
  6. RITUXIMAB [Suspect]
     Active Substance: RITUXIMAB
     Indication: RHEUMATOID ARTHRITIS
     Dosage: DATE OF MOST RECENT DOSE 23/APR/2014
     Route: 042
     Dates: start: 20130904
  7. TRAMADOL [Concomitant]
     Active Substance: TRAMADOL
     Route: 048
     Dates: start: 20111201
  8. LANSOPRAZOLE. [Concomitant]
     Active Substance: LANSOPRAZOLE
     Indication: HELICOBACTER TEST POSITIVE
     Route: 048
     Dates: start: 20101001
  9. SENNA [Concomitant]
     Active Substance: SENNA LEAF\SENNOSIDES\SENNOSIDES A AND B
     Indication: CONSTIPATION
     Route: 048
     Dates: start: 20130919
  10. FOLIC ACID. [Concomitant]
     Active Substance: FOLIC ACID
     Route: 048
     Dates: start: 20120216
  11. VENTOLIN [Concomitant]
     Active Substance: ALBUTEROL SULFATE
     Indication: ASTHMA
     Dosage: AS NECESSARY
     Route: 065
     Dates: start: 20120920
  12. QVAR [Concomitant]
     Active Substance: BECLOMETHASONE DIPROPIONATE
     Indication: ASTHMA
     Dosage: 50 APPLICATIONS
     Route: 065
     Dates: start: 20110803
  13. FLUXETIN [Concomitant]
     Indication: DEPRESSION
     Route: 048
     Dates: start: 20110101
  14. SULPHASALAZINE [Concomitant]
     Active Substance: SULFASALAZINE
     Route: 048
     Dates: start: 20111208, end: 20111212
  15. ADCAL - D3 [Concomitant]
     Indication: VITAMIN D DEFICIENCY
     Route: 048
     Dates: start: 20120820
  16. PREDNISOLONE. [Concomitant]
     Active Substance: PREDNISOLONE
     Indication: DYSPNOEA
     Route: 048
     Dates: start: 20140609
  17. INTAL [Concomitant]
     Active Substance: CROMOLYN SODIUM
     Indication: PROPHYLAXIS
     Dosage: 1 APPLICATION QDS
     Route: 061
     Dates: start: 20140625

REACTIONS (4)
  - Dyspepsia [Recovered/Resolved with Sequelae]
  - Troponin I increased [Not Recovered/Not Resolved]
  - Musculoskeletal pain [Recovered/Resolved with Sequelae]
  - Chest pain [Not Recovered/Not Resolved]

NARRATIVE: CASE EVENT DATE: 20140825
